FAERS Safety Report 9993362 (Version 1)
Quarter: 2014Q1

REPORT INFORMATION
  Report Type: Spontaneous
  Country: CN (occurrence: CN)
  Receive Date: 20140310
  Receipt Date: 20140310
  Transmission Date: 20141002
  Serious: Yes (Life-Threatening, Other)
  Sender: FDA-Public Use
  Company Number: CN-NAPPMUNDI-DEU-2014-0013888

PATIENT
  Age: 82 Year
  Sex: Female

DRUGS (1)
  1. OXYCONTIN TABLETS [Suspect]
     Indication: PAIN
     Dosage: 30 MG, Q12H
     Route: 048
     Dates: start: 20140110, end: 20140114

REACTIONS (4)
  - Haemoptysis [Unknown]
  - Muscular weakness [Recovered/Resolved]
  - Somnolence [Recovered/Resolved]
  - Stupor [Recovered/Resolved]
